FAERS Safety Report 7223573-2 (Version None)
Quarter: 2011Q1

REPORT INFORMATION
  Report Type: 
  Country: None (occurrence: None)
  Receive Date: 20110112
  Receipt Date: 20100830
  Transmission Date: 20110831
  Serious: No
  Sender: FDA-Public Use
  Company Number: US-ALLERGAN-1011176US

PATIENT
  Age: 65 Year
  Sex: Female

DRUGS (3)
  1. RESTASIS [Suspect]
     Indication: DRY EYE
     Dosage: UNK
     Route: 047
  2. OPTIVE [Concomitant]
     Indication: DRY EYE
     Dosage: UNK
  3. LUMIGAN [Concomitant]
     Indication: DRY EYE
     Dosage: UNK

REACTIONS (4)
  - EYE SWELLING [None]
  - INAPPROPRIATE SCHEDULE OF DRUG ADMINISTRATION [None]
  - EYE PRURITUS [None]
  - TRICHIASIS [None]
